FAERS Safety Report 7811290-7 (Version None)
Quarter: 2011Q4

REPORT INFORMATION
  Report Type: 
  Country: None (occurrence: None)
  Receive Date: 20111011
  Receipt Date: 20110928
  Transmission Date: 20120403
  Serious: Yes (Death)
  Sender: FDA-Public Use
  Company Number: JP-2011-11602

PATIENT
  Age: 75 Year
  Sex: Male

DRUGS (7)
  1. SERMION (NICERGOLINE) TABLET [Concomitant]
  2. BEZATOL SR (BEZAFIBRATE) TABLET [Concomitant]
  3. PLETAL [Suspect]
     Indication: CEREBRAL INFARCTION
     Dosage: 100 MG MILLIGRAM(S), BID, ORAL
     Route: 048
     Dates: start: 20110416
  4. PLETAL [Suspect]
     Indication: ARTERIOSCLEROSIS OBLITERANS
     Dosage: 100 MG MILLIGRAM(S), BID, ORAL
     Route: 048
     Dates: start: 20110416
  5. JUVELA N (TOCOPHEROL NICOTINATE) CAPSULE [Concomitant]
  6. TICLOPIDINE HCL [Concomitant]
  7. BLOPRESS (CANDESARTAN CILEXETIL) TABLET [Concomitant]

REACTIONS (1)
  - ACUTE MYOCARDIAL INFARCTION [None]
